FAERS Safety Report 7678009-4 (Version None)
Quarter: 2011Q3

REPORT INFORMATION
  Report Type: 
  Country: None (occurrence: None)
  Receive Date: 20110811
  Receipt Date: 20110803
  Transmission Date: 20111222
  Serious: Yes (Other)
  Sender: FDA-Public Use
  Company Number: MX-GLAXOSMITHKLINE-A0940394A

PATIENT
  Sex: Male

DRUGS (3)
  1. TRILEPTAL [Concomitant]
     Dates: start: 20110528
  2. PAROXETINE HCL [Suspect]
     Indication: DEPRESSION
     Dosage: 20MG PER DAY
     Route: 048
     Dates: start: 20110528
  3. EXELON [Concomitant]
     Dates: start: 20110528

REACTIONS (4)
  - AGGRESSION [None]
  - SOMNOLENCE [None]
  - NERVOUSNESS [None]
  - HEADACHE [None]
